FAERS Safety Report 13278913 (Version 2)
Quarter: 2018Q1

REPORT INFORMATION
  Report Type: Spontaneous
  Country: US (occurrence: US)
  Receive Date: 20170228
  Receipt Date: 20180223
  Transmission Date: 20180508
  Serious: No
  Sender: FDA-Public Use
  Company Number: US-IMPAX LABORATORIES, INC-2016-IPXL-02545

PATIENT
  Age: 58 Year
  Sex: Male
  Weight: 63 kg

DRUGS (7)
  1. L-ARGININE [Concomitant]
     Active Substance: ARGININE
     Indication: SUPPLEMENTATION THERAPY
     Dosage: UNK, MANY YEARS AGO
     Route: 065
  2. GINKGO BILOBA [Concomitant]
     Active Substance: GINKGO
     Indication: SUPPLEMENTATION THERAPY
     Dosage: UNK, MANY YEARS AGO
     Route: 065
  3. EMVERM [Suspect]
     Active Substance: MEBENDAZOLE
     Indication: ENTEROBIASIS
     Dosage: 100 MG, 1 TABLET, ONE DOSE ONLY
     Route: 048
     Dates: start: 20161222
  4. EMVERM [Suspect]
     Active Substance: MEBENDAZOLE
     Dosage: 100 MG 1 TABLET, 1 DOSE ONLY
     Route: 048
     Dates: start: 20161230
  5. VITAMIN B12 [Concomitant]
     Active Substance: CYANOCOBALAMIN
     Indication: SUPPLEMENTATION THERAPY
     Dosage: UNK, MANY YEARS AGO
     Route: 065
  6. GINGER. [Concomitant]
     Active Substance: GINGER
     Indication: SUPPLEMENTATION THERAPY
     Dosage: UNK, MANY YEARS AGO
     Route: 065
  7. L CITRULLINE [Concomitant]
     Active Substance: CITRULLINE
     Indication: SUPPLEMENTATION THERAPY
     Dosage: UNK, MANY YEARS AGO
     Route: 065

REACTIONS (2)
  - Self-medication [Unknown]
  - Drug ineffective [Unknown]

NARRATIVE: CASE EVENT DATE: 201612
